FAERS Safety Report 9046622 (Version 2)
Quarter: 2013Q2

REPORT INFORMATION
  Report Type: Spontaneous
  Country: US (occurrence: US)
  Receive Date: 20130204
  Receipt Date: 20130426
  Transmission Date: 20140414
  Serious: Yes (Hospitalization)
  Sender: FDA-Public Use
  Company Number: US-BIOGENIDEC-2013BI008582

PATIENT
  Age: 59 Year
  Sex: Female

DRUGS (2)
  1. AVONEX [Suspect]
     Indication: MULTIPLE SCLEROSIS
     Route: 030
     Dates: start: 20010309
  2. AVONEX [Suspect]
     Indication: MULTIPLE SCLEROSIS
     Route: 030

REACTIONS (19)
  - Spinal deformity [Recovered/Resolved]
  - Joint dislocation [Recovered/Resolved]
  - Gait disturbance [Not Recovered/Not Resolved]
  - Autoimmune disorder [Unknown]
  - Peroneal nerve palsy [Unknown]
  - Intervertebral disc degeneration [Not Recovered/Not Resolved]
  - Scoliosis [Unknown]
  - Body height decreased [Not Recovered/Not Resolved]
  - Mobility decreased [Not Recovered/Not Resolved]
  - Body dysmorphic disorder [Not Recovered/Not Resolved]
  - Spinal column stenosis [Unknown]
  - Rhinitis seasonal [Not Recovered/Not Resolved]
  - Sensitivity to weather change [Not Recovered/Not Resolved]
  - Photosensitivity reaction [Not Recovered/Not Resolved]
  - Restless legs syndrome [Not Recovered/Not Resolved]
  - Injection site pain [Unknown]
  - Fatigue [Not Recovered/Not Resolved]
  - Asthenia [Unknown]
  - Emotional distress [Unknown]
